FAERS Safety Report 11213954 (Version 1)
Quarter: 2015Q2

REPORT INFORMATION
  Report Type: Spontaneous
  Country: AU (occurrence: AU)
  Receive Date: 20150623
  Receipt Date: 20150623
  Transmission Date: 20150821
  Serious: Yes (Hospitalization, Other)
  Sender: FDA-Public Use
  Company Number: ALCN2015AU003929

PATIENT
  Age: 2 Year
  Sex: Female
  Weight: 14 kg

DRUGS (1)
  1. NAPHCON A [Suspect]
     Active Substance: NAPHAZOLINE HYDROCHLORIDE\PHENIRAMINE MALEATE
     Indication: ACCIDENTAL EXPOSURE TO PRODUCT
     Dosage: 15 ML, ONCE/SINGLE
     Route: 048

REACTIONS (11)
  - Toxicity to various agents [Recovered/Resolved]
  - Blood pressure fluctuation [Recovered/Resolved]
  - Hypothermia [Recovered/Resolved]
  - Heart rate irregular [Recovered/Resolved]
  - Lethargy [Recovered/Resolved]
  - Somnolence [Recovered/Resolved]
  - Gait disturbance [Recovered/Resolved]
  - Pallor [Recovered/Resolved]
  - Consciousness fluctuating [Recovered/Resolved]
  - Fall [Recovered/Resolved]
  - Accidental exposure to product [Recovered/Resolved]
